FAERS Safety Report 9296369 (Version 3)
Quarter: 2013Q4

REPORT INFORMATION
  Report Type: Spontaneous
  Country: US (occurrence: US)
  Receive Date: 20130517
  Receipt Date: 20131108
  Transmission Date: 20140711
  Serious: Yes (Death, Hospitalization, Other)
  Sender: FDA-Public Use
  Company Number: US-B.I. PHARMACEUTICALS,INC./RIDGEFIELD-2013-BI-13945BP

PATIENT
  Age: 88 Year
  Sex: Male
  Weight: 136.08 kg

DRUGS (12)
  1. PRADAXA [Suspect]
     Indication: ATRIAL FIBRILLATION
     Dosage: 300 MG
     Route: 048
     Dates: start: 20110428, end: 20110506
  2. ALLOPURINOL [Concomitant]
  3. BRIMONIDINE [Concomitant]
  4. CARDIZEM [Concomitant]
  5. COSOPT [Concomitant]
  6. FERROUS SULFATE [Concomitant]
  7. SYNTHROID [Concomitant]
  8. COZAAR [Concomitant]
  9. METOPROLOL [Concomitant]
  10. MIRALAX [Concomitant]
  11. ZANTAC [Concomitant]
  12. ZOCOR [Concomitant]

REACTIONS (3)
  - Gastrointestinal haemorrhage [Fatal]
  - Haemorrhagic anaemia [Unknown]
  - Respiratory failure [Unknown]
